FAERS Safety Report 4930717-1 (Version None)
Quarter: 2006Q1

REPORT INFORMATION
  Report Type: 
  Country: None (occurrence: None)
  Receive Date: 20060227
  Receipt Date: 20060213
  Transmission Date: 20060701
  Serious: Yes (Disabling, Other)
  Sender: FDA-Public Use
  Company Number: 2006023731

PATIENT
  Sex: Male
  Weight: 84.369 kg

DRUGS (1)
  1. VIAGRA [Suspect]
     Indication: ERECTILE DYSFUNCTION
     Dosage: 100 MG (100 MG)

REACTIONS (5)
  - BLOOD TESTOSTERONE DECREASED [None]
  - BLOOD TESTOSTERONE INCREASED [None]
  - DRUG EFFECT DECREASED [None]
  - MULTIPLE SCLEROSIS [None]
  - STRESS [None]
